FAERS Safety Report 10565874 (Version 1)
Quarter: 2014Q4

REPORT INFORMATION
  Report Type: Spontaneous
  Country: GB (occurrence: GB)
  Receive Date: 20141105
  Receipt Date: 20141105
  Transmission Date: 20150529
  Serious: Yes (Hospitalization)
  Sender: FDA-Public Use
  Company Number: PHHY2014GB142388

PATIENT
  Age: 76 Year
  Sex: Male

DRUGS (31)
  1. CLONIDINE. [Concomitant]
     Active Substance: CLONIDINE
  2. FUROSEMIDE. [Concomitant]
     Active Substance: FUROSEMIDE
  3. LANSOPRAZOLE. [Concomitant]
     Active Substance: LANSOPRAZOLE
  4. METOCLOPRAMIDE. [Concomitant]
     Active Substance: METOCLOPRAMIDE
  5. NYSTATIN. [Concomitant]
     Active Substance: NYSTATIN
  6. TINZAPARIN [Concomitant]
     Active Substance: TINZAPARIN
  7. INSULIN HUMAN [Concomitant]
     Active Substance: INSULIN HUMAN
  8. PARACETAMOL [Suspect]
     Active Substance: ACETAMINOPHEN
     Dosage: 500 MG, QID
     Dates: end: 20141014
  9. FLUCONAZOLE. [Suspect]
     Active Substance: FLUCONAZOLE
     Dosage: 50 MG, QD
     Route: 048
     Dates: start: 20140925, end: 20141003
  10. ASPIRIN. [Concomitant]
     Active Substance: ASPIRIN
  11. METHYLPREDISOLONE [Concomitant]
     Active Substance: METHYLPREDNISOLONE
  12. PREDNISOLONE. [Concomitant]
     Active Substance: PREDNISOLONE
  13. FENTANYL. [Concomitant]
     Active Substance: FENTANYL
  14. HALOPERIDOL. [Concomitant]
     Active Substance: HALOPERIDOL
  15. NOREPINEPHRINE [Concomitant]
     Active Substance: NOREPINEPHRINE\NOREPINEPHRINE BITARTRATE
  16. NEFOPAM [Concomitant]
     Active Substance: NEFOPAM
  17. NEOMYCIN [Concomitant]
     Active Substance: NEOMYCIN
  18. AMLODIPINE [Concomitant]
     Active Substance: AMLODIPINE BESYLATE
  19. TAZOCIN [Concomitant]
     Active Substance: PIPERACILLIN SODIUM\TAZOBACTAM SODIUM
  20. GENTAMICIN. [Concomitant]
     Active Substance: GENTAMICIN
  21. OMEPRAZOLE. [Concomitant]
     Active Substance: OMEPRAZOLE
  22. SENNA [Concomitant]
     Active Substance: SENNA LEAF\SENNOSIDES\SENNOSIDES A AND B
  23. FLUCONAZOLE. [Suspect]
     Active Substance: FLUCONAZOLE
     Indication: DENTAL CARE
     Dosage: 400 MG, QD 50 MG DAILY FROM THE 25/9 - 3/10 THEN 400 MG DAILY
     Route: 048
     Dates: start: 20141004, end: 20141014
  24. BISOPROLOL [Concomitant]
     Active Substance: BISOPROLOL
  25. PROPOFOL. [Concomitant]
     Active Substance: PROPOFOL
  26. SALBUTAMOL [Concomitant]
     Active Substance: ALBUTEROL
  27. ZOPICLONE [Concomitant]
     Active Substance: ZOPICLONE
  28. MELATONIN [Concomitant]
     Active Substance: MELATONIN
  29. RANITIDINE [Concomitant]
     Active Substance: RANITIDINE\RANITIDINE HYDROCHLORIDE
  30. SPIRONOLACTONE. [Concomitant]
     Active Substance: SPIRONOLACTONE
  31. COLISTIN [Concomitant]
     Active Substance: COLISTIN

REACTIONS (1)
  - Alanine aminotransferase increased [Recovering/Resolving]

NARRATIVE: CASE EVENT DATE: 20141006
